FAERS Safety Report 9387635 (Version 2)
Quarter: 2013Q3

REPORT INFORMATION
  Report Type: Spontaneous
  Country: FR (occurrence: FR)
  Receive Date: 20130708
  Receipt Date: 20130925
  Transmission Date: 20140515
  Serious: Yes (Death, Disabling)
  Sender: FDA-Public Use
  Company Number: FR-PFIZER INC-2013196345

PATIENT
  Age: 65 Year
  Sex: Female

DRUGS (21)
  1. OXALIPLATIN [Suspect]
     Indication: PANCREATIC CARCINOMA
     Dosage: 85 MG/KG, UNK
     Route: 042
     Dates: start: 20120403, end: 20121114
  2. FLUOROURACIL [Suspect]
     Indication: PANCREATIC CARCINOMA
     Dosage: 1600 MG/M2, 1X/DAY
     Route: 042
     Dates: start: 20120403, end: 20121114
  3. IRINOTECAN HCL [Suspect]
     Indication: PANCREATIC CARCINOMA
     Dosage: 180 MG/M2, 1X/DAY
     Route: 042
     Dates: start: 20120403, end: 20121114
  4. CALCIUM FOLINATE [Suspect]
     Indication: PANCREATIC CARCINOMA
     Dosage: 288 MG, 1X/DAY
     Route: 042
     Dates: start: 20120403, end: 20121114
  5. SOLU-MEDROL [Suspect]
     Indication: PANCREATIC CARCINOMA
     Dosage: 60 MG, 1X/DAY
     Route: 042
     Dates: start: 20120403, end: 20121114
  6. SOLU-MEDROL [Suspect]
     Indication: PREMEDICATION
  7. ATROPINE SULFATE [Suspect]
     Indication: PANCREATIC CARCINOMA
     Dosage: 0.25 MG, 1X/DAY
     Route: 058
     Dates: start: 20120403, end: 20121114
  8. ATROPINE SULFATE [Suspect]
     Indication: PREMEDICATION
  9. ZOPHREN [Suspect]
     Indication: PANCREATIC CARCINOMA
     Dosage: 8 MG, 1X/DAY
     Route: 042
     Dates: start: 20120403, end: 20121114
  10. ZOPHREN [Suspect]
     Indication: PREMEDICATION
  11. EMEND [Suspect]
     Indication: PANCREATIC CARCINOMA
     Dosage: 125 MG, 1X/DAY
     Route: 048
     Dates: start: 20120403, end: 20121114
  12. EMEND [Suspect]
     Indication: PREMEDICATION
  13. LEVOTHYROX [Concomitant]
  14. FLUOXETINE HYDROCHLORIDE [Concomitant]
  15. PRAVASTATIN SODIUM [Concomitant]
  16. VOGALENE LYOC [Concomitant]
     Dosage: 7.5 MG, LYOPHILISAT, UNK
     Route: 048
  17. DIFFU K [Concomitant]
  18. LOPERAMIDE [Concomitant]
  19. EUPANTOL [Concomitant]
  20. PRIMPERAN [Concomitant]
  21. INNOHEP [Concomitant]

REACTIONS (6)
  - Endocarditis [Fatal]
  - Peripheral sensory neuropathy [Not Recovered/Not Resolved]
  - Arthralgia [Not Recovered/Not Resolved]
  - Insomnia [Not Recovered/Not Resolved]
  - Limb discomfort [Not Recovered/Not Resolved]
  - Paraesthesia [Not Recovered/Not Resolved]
